FAERS Safety Report 7728287-8 (Version None)
Quarter: 2011Q3

REPORT INFORMATION
  Report Type: 
  Country: None (occurrence: None)
  Receive Date: 20110905
  Receipt Date: 20110830
  Transmission Date: 20111222
  Serious: Yes (Other)
  Sender: FDA-Public Use
  Company Number: PHEH2011US02776

PATIENT
  Sex: Male

DRUGS (8)
  1. PRILOSEC [Concomitant]
     Dosage: UNK UKN, UNK
  2. MELATONIN [Concomitant]
     Dosage: UNK UKN, UNK
  3. SLEEP AID [Concomitant]
     Dosage: UNK UKN, UNK
  4. STALEVO 100 [Suspect]
     Indication: PARKINSON'S DISEASE
     Dosage: 125 MG, 5QD
  5. METOPROLOL [Concomitant]
     Dosage: UNK UKN, UNK
  6. FERROUS SULFATE TAB [Concomitant]
     Dosage: UNK UKN, UNK
  7. FISH OIL [Concomitant]
     Dosage: UNK UKN, UNK
  8. STALEVO 100 [Suspect]
     Dosage: UNK UKN, UNK

REACTIONS (4)
  - MALABSORPTION [None]
  - PAIN [None]
  - FALL [None]
  - INJURY [None]
